FAERS Safety Report 20004321 (Version 3)
Quarter: 2022Q1

REPORT INFORMATION
  Report Type: Report from Study
  Country: EG (occurrence: EG)
  Receive Date: 20211028
  Receipt Date: 20220105
  Transmission Date: 20220423
  Serious: Yes (Other)
  Sender: FDA-Public Use
  Company Number: EG-BAYER-2021A224553

PATIENT

DRUGS (9)
  1. EYLEA [Suspect]
     Active Substance: AFLIBERCEPT
     Indication: Diabetic retinal oedema
     Dosage: THE TOTAL NO. OF EYLEA INJECTIONS IS 13 (1 RIGHT EYE AND 12 LEFT EYE)
     Route: 031
     Dates: start: 2017
  2. EYLEA [Suspect]
     Active Substance: AFLIBERCEPT
     Dosage: 1 DF, ONCE (OS)
     Route: 031
     Dates: start: 20210705, end: 20210705
  3. EYLEA [Suspect]
     Active Substance: AFLIBERCEPT
     Dosage: LAST INJECTION (OS)
     Route: 031
     Dates: start: 20211003, end: 20211003
  4. LUCENTIS [Suspect]
     Active Substance: RANIBIZUMAB
     Indication: Product used for unknown indication
     Dosage: AS HE INJECTED AROUND 16 INJECTIONS WITHIN 3 YEARS (EYLEA + LUCENTIS)
     Route: 031
  5. JANUMET                            /06535301/ [Concomitant]
     Indication: Diabetes mellitus
     Dosage: 1 DF, QD
     Dates: start: 2011
  6. JANUMET                            /06535301/ [Concomitant]
     Dosage: UNK
  7. ACTRAPID                           /00646001/ [Concomitant]
     Indication: Diabetes mellitus
     Dosage: UNK
  8. LANTUS [Concomitant]
     Active Substance: INSULIN GLARGINE
     Indication: Diabetes mellitus
     Dosage: UNK
  9. INVOKANA                           /06516901/ [Concomitant]
     Indication: Diabetes mellitus
     Dosage: UNK

REACTIONS (9)
  - Night blindness [Not Recovered/Not Resolved]
  - Visual impairment [Not Recovered/Not Resolved]
  - Photopsia [Not Recovered/Not Resolved]
  - Visual impairment [Recovering/Resolving]
  - Visual impairment [Recovered/Resolved]
  - Gastric bypass [Unknown]
  - Vision blurred [Recovered/Resolved]
  - Drug ineffective [Not Recovered/Not Resolved]
  - Nervousness [Not Recovered/Not Resolved]

NARRATIVE: CASE EVENT DATE: 20170101
